FAERS Safety Report 7777529-1 (Version None)
Quarter: 2011Q3

REPORT INFORMATION
  Report Type: 
  Country: None (occurrence: None)
  Receive Date: 20110926
  Receipt Date: 20110912
  Transmission Date: 20111222
  Serious: Yes (Hospitalization, Other)
  Sender: FDA-Public Use
  Company Number: CA-ELI_LILLY_AND_COMPANY-CA201109002900

PATIENT
  Sex: Female

DRUGS (8)
  1. ZYPREXA [Suspect]
     Dosage: 5 MG, QD
  2. CLONAZEPAM [Concomitant]
  3. SERTRALINE HYDROCHLORIDE [Concomitant]
  4. LORAZEPAM [Concomitant]
  5. MIRTAZAPINE [Concomitant]
  6. SEROQUEL [Concomitant]
  7. TEMAZEPAM [Concomitant]
  8. RISPERIDONE [Concomitant]

REACTIONS (15)
  - RESPIRATORY FAILURE [None]
  - PULMONARY HYPERTENSION [None]
  - CORONARY ARTERY DISEASE [None]
  - BRONCHIECTASIS [None]
  - DIABETES MELLITUS [None]
  - MICROCYTIC ANAEMIA [None]
  - CEREBROVASCULAR DISORDER [None]
  - HYPOKALAEMIA [None]
  - ANGINA PECTORIS [None]
  - HYPERCAPNIA [None]
  - HEPATITIS A ANTIBODY POSITIVE [None]
  - CHRONIC OBSTRUCTIVE PULMONARY DISEASE [None]
  - HYPERTENSION [None]
  - CARDIAC FAILURE CONGESTIVE [None]
  - DYSLIPIDAEMIA [None]
